FAERS Safety Report 6965115-2 (Version None)
Quarter: 2010Q3

REPORT INFORMATION
  Report Type: 
  Country: None (occurrence: None)
  Receive Date: 20100903
  Receipt Date: 20100825
  Transmission Date: 20110219
  Serious: Yes (Death, Hospitalization)
  Sender: FDA-Public Use
  Company Number: IT-ELI_LILLY_AND_COMPANY-IT201006007063

PATIENT
  Sex: Female
  Weight: 66 kg

DRUGS (2)
  1. GEMCITABINE HCL [Suspect]
     Indication: BREAST CANCER METASTATIC
     Dosage: 1000 MG, WEEKLY (1/W)
     Route: 042
     Dates: start: 20091106
  2. PACLITAXEL [Suspect]
     Indication: BREAST CANCER METASTATIC
     Dosage: 100 MG, WEEKLY (1/W)
     Route: 042
     Dates: start: 20091106

REACTIONS (1)
  - PNEUMONITIS [None]
